FAERS Safety Report 5720268-9 (Version None)
Quarter: 2008Q2

REPORT INFORMATION
  Report Type: 
  Country: None (occurrence: None)
  Receive Date: 20080428
  Receipt Date: 20080417
  Transmission Date: 20081010
  Serious: Yes (Death, Hospitalization, Other)
  Sender: FDA-Public Use
  Company Number: DE-ROCHE-494226

PATIENT
  Age: 76 Year
  Sex: Female
  Weight: 88 kg

DRUGS (6)
  1. CAPECITABINE [Suspect]
     Dosage: DOSE REPORTED AS 4 X 500 MG TWICE A DAY.
     Route: 048
     Dates: start: 20060219, end: 20070402
  2. ZOLEDRONIC ACID [Concomitant]
     Route: 042
     Dates: start: 20040826, end: 20070307
  3. GLYBURIDE [Concomitant]
     Indication: DIABETES MELLITUS
     Route: 048
     Dates: start: 19900601
  4. METFORMIN HCL [Concomitant]
     Indication: DIABETES MELLITUS
     Route: 048
     Dates: start: 19900601
  5. INSULIN [Concomitant]
     Indication: DIABETES MELLITUS
     Dosage: DAILY DOSE ALSO REPORTED AS ^20 DOSE(S), IN 1 DAY^.
     Route: 058
     Dates: start: 19980901
  6. CAPTOPIRIL [Concomitant]
     Indication: HYPERTENSION
     Route: 048
     Dates: start: 20060101

REACTIONS (3)
  - ANAEMIA [None]
  - DEATH [None]
  - PALMAR-PLANTAR ERYTHRODYSAESTHESIA SYNDROME [None]
